FAERS Safety Report 15711047 (Version 1)
Quarter: 2018Q4

REPORT INFORMATION
  Report Type: Spontaneous
  Country: KR (occurrence: KR)
  Receive Date: 20181211
  Receipt Date: 20181211
  Transmission Date: 20190205
  Serious: Yes (Other)
  Sender: FDA-Public Use
  Company Number: PHHY2018KR177703

PATIENT
  Age: 40 Year
  Sex: Female
  Weight: 86 kg

DRUGS (5)
  1. EXJADE [Suspect]
     Active Substance: DEFERASIROX
     Indication: APLASIA PURE RED CELL
     Dosage: 1250 MG, UNK
     Route: 065
     Dates: start: 201210, end: 201211
  2. EXJADE [Suspect]
     Active Substance: DEFERASIROX
     Dosage: 1750-2000 MG
     Route: 065
     Dates: start: 201607, end: 201803
  3. EXJADE [Suspect]
     Active Substance: DEFERASIROX
     Dosage: 1500 MG, UNK
     Route: 065
     Dates: start: 201511
  4. EXJADE [Suspect]
     Active Substance: DEFERASIROX
     Indication: APLASIA PURE RED CELL
     Dosage: 1440 MG, UNK
     Route: 065
     Dates: start: 201803
  5. EXJADE [Suspect]
     Active Substance: DEFERASIROX
     Dosage: 1250 MG, UNK
     Route: 065
     Dates: start: 201411

REACTIONS (7)
  - Serum ferritin increased [Unknown]
  - Nausea [Unknown]
  - Haemochromatosis [Unknown]
  - Urticaria [Unknown]
  - Vomiting [Unknown]
  - Drug intolerance [Unknown]
  - Congestive cardiomyopathy [Unknown]

NARRATIVE: CASE EVENT DATE: 201210
